FAERS Safety Report 18102515 (Version 2)
Quarter: 2020Q3

REPORT INFORMATION
  Report Type: Spontaneous
  Country: IT (occurrence: IT)
  Receive Date: 20200803
  Receipt Date: 20200806
  Transmission Date: 20201103
  Serious: Yes (Other)
  Sender: FDA-Public Use
  Company Number: IT-AUROBINDO-AUR-APL-2020-036648

PATIENT
  Age: 55 Year
  Sex: Male

DRUGS (16)
  1. DULOXETINE. [Suspect]
     Active Substance: DULOXETINE
     Indication: FOOT DEFORMITY
  2. PREGABALIN. [Suspect]
     Active Substance: PREGABALIN
     Indication: PAIN IN EXTREMITY
     Dosage: UNK
     Route: 048
  3. TRAZODONE [Suspect]
     Active Substance: TRAZODONE HYDROCHLORIDE
     Indication: PAIN IN EXTREMITY
  4. PREGABALIN. [Suspect]
     Active Substance: PREGABALIN
     Indication: PAIN IN EXTREMITY
  5. PREGABALIN. [Suspect]
     Active Substance: PREGABALIN
     Indication: MOVEMENT DISORDER
  6. CLONAZEPAM. [Suspect]
     Active Substance: CLONAZEPAM
     Indication: PAIN IN EXTREMITY
     Dosage: UNK
     Route: 048
  7. CLONAZEPAM. [Suspect]
     Active Substance: CLONAZEPAM
     Indication: PAIN IN EXTREMITY
  8. CLONAZEPAM. [Suspect]
     Active Substance: CLONAZEPAM
     Indication: MOVEMENT DISORDER
  9. DULOXETINE. [Suspect]
     Active Substance: DULOXETINE
     Indication: PAIN IN EXTREMITY
     Dosage: UNK
     Route: 048
  10. CLONAZEPAM. [Suspect]
     Active Substance: CLONAZEPAM
     Indication: FOOT DEFORMITY
  11. TRAZODONE [Suspect]
     Active Substance: TRAZODONE HYDROCHLORIDE
     Indication: PAIN IN EXTREMITY
     Dosage: UNK
     Route: 048
  12. DULOXETINE. [Suspect]
     Active Substance: DULOXETINE
     Indication: MOVEMENT DISORDER
  13. DULOXETINE. [Suspect]
     Active Substance: DULOXETINE
     Indication: PAIN IN EXTREMITY
  14. PREGABALIN. [Suspect]
     Active Substance: PREGABALIN
     Indication: FOOT DEFORMITY
  15. TRAZODONE [Suspect]
     Active Substance: TRAZODONE HYDROCHLORIDE
     Indication: MOVEMENT DISORDER
  16. TRAZODONE [Suspect]
     Active Substance: TRAZODONE HYDROCHLORIDE
     Indication: FOOT DEFORMITY

REACTIONS (1)
  - Drug ineffective [Unknown]
